FAERS Safety Report 15954971 (Version 3)
Quarter: 2019Q2

REPORT INFORMATION
  Report Type: Spontaneous
  Country: US (occurrence: US)
  Receive Date: 20190213
  Receipt Date: 20190620
  Transmission Date: 20190711
  Serious: No
  Sender: FDA-Public Use
  Company Number: US-BIOGEN-2019BI00696070

PATIENT
  Sex: Male

DRUGS (4)
  1. TYSABRI [Suspect]
     Active Substance: NATALIZUMAB
     Indication: RELAPSING-REMITTING MULTIPLE SCLEROSIS
     Route: 050
     Dates: start: 20080822
  2. INDOMETHACIN. [Concomitant]
     Active Substance: INDOMETHACIN
     Route: 065
  3. NABUMETONE. [Concomitant]
     Active Substance: NABUMETONE
     Route: 065
  4. PROVIGIL [Concomitant]
     Active Substance: MODAFINIL
     Route: 065

REACTIONS (5)
  - Nerve injury [Unknown]
  - Multiple sclerosis relapse [Unknown]
  - Sciatica [Unknown]
  - Pain in extremity [Unknown]
  - Radiculopathy [Unknown]
